APPROVED DRUG PRODUCT: TRIFERIC
Active Ingredient: FERRIC PYROPHOSPHATE CITRATE
Strength: 272MG IRON/50ML (5.44MG IRON/ML)
Dosage Form/Route: SOLUTION;INTRAVENOUS
Application: N206317 | Product #002
Applicant: ROCKWELL MEDICAL INC
Approved: Sep 4, 2015 | RLD: Yes | RS: No | Type: DISCN